FAERS Safety Report 9208212 (Version 1)
Quarter: 2013Q2

REPORT INFORMATION
  Report Type: Spontaneous
  Country: BE (occurrence: BE)
  Receive Date: 20130403
  Receipt Date: 20130403
  Transmission Date: 20140414
  Serious: Yes (Other)
  Sender: FDA-Public Use
  Company Number: BE-BAXTER-2013BAX011338

PATIENT
  Age: 57 Year
  Sex: Female
  Weight: 45 kg

DRUGS (14)
  1. ENDOXAN [Suspect]
     Indication: BREAST NEOPLASM
     Route: 042
     Dates: start: 20130116, end: 20130116
  2. EPIRUBICIN [Suspect]
     Indication: BREAST NEOPLASM
     Route: 042
     Dates: start: 20130116, end: 20130116
  3. FLUOROURACIL [Suspect]
     Indication: BREAST NEOPLASM
     Route: 042
     Dates: start: 20130116, end: 20130116
  4. ASAFLOW [Concomitant]
     Indication: CEREBROVASCULAR ACCIDENT
     Route: 048
  5. CALCIUM SANDOZ [Concomitant]
     Indication: MINERAL SUPPLEMENTATION
     Route: 048
  6. D-CURE [Concomitant]
     Indication: VITAMIN D DEFICIENCY
     Route: 048
  7. FOLAVIT [Concomitant]
     Indication: PRODUCT USED FOR UNKNOWN INDICATION
     Route: 048
  8. FURADANTIN [Concomitant]
     Indication: PRODUCT USED FOR UNKNOWN INDICATION
     Route: 048
  9. LIORESAL [Concomitant]
     Indication: MULTIPLE SCLEROSIS
     Route: 048
  10. MOVICOL [Concomitant]
     Indication: CONSTIPATION PROPHYLAXIS
     Route: 048
  11. PANTOMED [Concomitant]
     Indication: PRODUCT USED FOR UNKNOWN INDICATION
     Route: 048
  12. ZOCOR [Concomitant]
     Indication: HYPERCHOLESTEROLAEMIA
     Route: 048
  13. BETAFERON [Concomitant]
     Indication: MULTIPLE SCLEROSIS
     Route: 058
  14. QUININE SULFATE [Concomitant]
     Indication: PRODUCT USED FOR UNKNOWN INDICATION
     Route: 048

REACTIONS (3)
  - Rash [Recovered/Resolved]
  - Pruritus [Recovered/Resolved]
  - Burning sensation [Recovered/Resolved]
